FAERS Safety Report 6035401-1 (Version None)
Quarter: 2009Q1

REPORT INFORMATION
  Report Type: 
  Country: None (occurrence: None)
  Receive Date: 20090112
  Receipt Date: 20090112
  Transmission Date: 20090719
  Serious: Yes (Disabling)
  Sender: FDA-Public Use
  Company Number: None

PATIENT
  Age: 30 Year
  Sex: Female
  Weight: 159.6662 kg

DRUGS (1)
  1. MIRENA [Suspect]
     Indication: CONTRACEPTION
     Dosage: YEAR

REACTIONS (5)
  - COMPLICATION OF DEVICE REMOVAL [None]
  - DEVICE RELATED INFECTION [None]
  - IUCD COMPLICATION [None]
  - PAIN [None]
  - PELVIC PAIN [None]
